FAERS Safety Report 5580563-3 (Version None)
Quarter: 2007Q4

REPORT INFORMATION
  Report Type: 
  Country: None (occurrence: None)
  Receive Date: 20071231
  Receipt Date: 20071231
  Transmission Date: 20080405
  Serious: No
  Sender: FDA-Public Use
  Company Number: None

PATIENT
  Age: 56 Year
  Sex: Female

DRUGS (1)
  1. BLEOMYCIN [Suspect]
     Indication: PULMONARY TOXICITY
     Dosage: 10 U/M2 Q12D IV
     Route: 042
     Dates: start: 20070319, end: 20070617

REACTIONS (3)
  - COUGH [None]
  - DYSPNOEA [None]
  - PULMONARY TOXICITY [None]
